FAERS Safety Report 17194754 (Version 1)
Quarter: 2019Q4

REPORT INFORMATION
  Report Type: Spontaneous
  Country: DE (occurrence: DE)
  Receive Date: 20191224
  Receipt Date: 20191224
  Transmission Date: 20200122
  Serious: Yes (Other)
  Sender: FDA-Public Use
  Company Number: DE-TEVA-2019-DE-1156841

PATIENT
  Age: 55 Year
  Sex: Male
  Weight: 89 kg

DRUGS (1)
  1. TRAMADOLOR LOSUNG M.DOSIERPUMPE [Suspect]
     Active Substance: TRAMADOL
     Dosage: 3X40 DROPS OR, IF NECESSARY, MORE THAN 3X DAILY
     Route: 048
     Dates: start: 20180212

REACTIONS (2)
  - Erectile dysfunction [Not Recovered/Not Resolved]
  - Sensory loss [Not Recovered/Not Resolved]

NARRATIVE: CASE EVENT DATE: 20180316
